FAERS Safety Report 12875815 (Version 1)
Quarter: 2016Q4

REPORT INFORMATION
  Report Type: Spontaneous
  Country: US (occurrence: US)
  Receive Date: 20161024
  Receipt Date: 20161024
  Transmission Date: 20170207
  Serious: Yes (Other)
  Sender: FDA-Public Use
  Company Number: US-DRREDDYS-USA/USA/16/0084185

PATIENT
  Age: 15 Year
  Sex: Female
  Weight: 56.7 kg

DRUGS (1)
  1. SUMATRIPTAN SUCCINATE TABLETS [Suspect]
     Active Substance: SUMATRIPTAN SUCCINATE
     Indication: MIGRAINE
     Route: 048
     Dates: start: 20161017

REACTIONS (3)
  - Vertigo [Unknown]
  - Pharyngeal oedema [Unknown]
  - Dysphagia [Unknown]
